FAERS Safety Report 11948265 (Version 1)
Quarter: 2016Q1

REPORT INFORMATION
  Report Type: Spontaneous
  Country: US (occurrence: None)
  Receive Date: 20160121
  Receipt Date: 20160121
  Transmission Date: 20160526
  Serious: Yes (Other)
  Sender: FDA-Public Use
  Company Number: None

PATIENT
  Age: 36 Year
  Sex: Female

DRUGS (1)
  1. MYCOPHENOLIC 180 [Suspect]
     Active Substance: MYCOPHENOLIC ACID
     Dosage: 3 BID

REACTIONS (4)
  - Swelling [None]
  - Drug dose omission [None]
  - Transplant rejection [None]
  - Hypertension [None]

NARRATIVE: CASE EVENT DATE: 20160120
